FAERS Safety Report 7502627-7 (Version None)
Quarter: 2011Q2

REPORT INFORMATION
  Report Type: 
  Country: None (occurrence: None)
  Receive Date: 20110525
  Receipt Date: 20110512
  Transmission Date: 20111010
  Serious: Yes (Other)
  Sender: FDA-Public Use
  Company Number: PHHY2011DE40992

PATIENT
  Age: 53 Year
  Sex: Female

DRUGS (3)
  1. ZOLEDRONATE [Suspect]
     Dosage: UNK
     Route: 042
     Dates: start: 20020901, end: 20030901
  2. CORTISONE ACETATE [Concomitant]
  3. CHEMOTHERAPEUTICS NOS [Concomitant]
     Dosage: UNK

REACTIONS (1)
  - OSTEONECROSIS OF JAW [None]
